FAERS Safety Report 13162936 (Version 1)
Quarter: 2017Q1

REPORT INFORMATION
  Report Type: Spontaneous
  Country: US (occurrence: US)
  Receive Date: 20170130
  Receipt Date: 20170130
  Transmission Date: 20170428
  Serious: Yes (Disabling)
  Sender: FDA-Public Use
  Company Number: None

PATIENT
  Age: 80 Year
  Sex: Male
  Weight: 83.46 kg

DRUGS (12)
  1. ADVAIR DISCUS INHALER [Concomitant]
  2. SIMVASTATIN. [Concomitant]
     Active Substance: SIMVASTATIN
  3. PRO AIR INHALER [Concomitant]
  4. ASPIRIN. [Concomitant]
     Active Substance: ASPIRIN
  5. VITAMIN B12 [Concomitant]
     Active Substance: CYANOCOBALAMIN
  6. LEVOTHYROXINE. [Concomitant]
     Active Substance: LEVOTHYROXINE
  7. COQ10 [Concomitant]
     Active Substance: UBIDECARENONE
  8. LEVOFLOXACIN TABLETS, 500MG [Suspect]
     Active Substance: LEVOFLOXACIN
     Indication: UPPER RESPIRATORY TRACT INFECTION
     Dosage: FREQUENCY - 1 TAB DAILY FOR 5 DAYS
     Route: 048
     Dates: start: 20161222, end: 20161226
  9. MULTI VITAMIN [Concomitant]
     Active Substance: VITAMINS
  10. VITAMIN D3 [Concomitant]
     Active Substance: CHOLECALCIFEROL
  11. IRON (FERROUS SULFATE) [Concomitant]
  12. METOPROLOL TARTRATE. [Concomitant]
     Active Substance: METOPROLOL TARTRATE

REACTIONS (1)
  - Tendon discomfort [None]

NARRATIVE: CASE EVENT DATE: 20161229
